FAERS Safety Report 16133859 (Version 1)
Quarter: 2019Q1

REPORT INFORMATION
  Report Type: Spontaneous
  Country: US (occurrence: US)
  Receive Date: 20190329
  Receipt Date: 20190329
  Transmission Date: 20190418
  Serious: Yes (Other)
  Sender: FDA-Public Use
  Company Number: US-ABBVIE-18S-163-2384192-00

PATIENT
  Sex: Female
  Weight: 11.33 kg

DRUGS (1)
  1. RIBAVIRIN. [Suspect]
     Active Substance: RIBAVIRIN
     Indication: EXPOSURE VIA BODY FLUID
     Route: 050

REACTIONS (6)
  - Hip deformity [Unknown]
  - Upper respiratory tract infection [Unknown]
  - Rash [Unknown]
  - Cough [Unknown]
  - Foetal exposure during pregnancy [Unknown]
  - Paternal drugs affecting foetus [Unknown]

NARRATIVE: CASE EVENT DATE: 2017
